FAERS Safety Report 4468294-4 (Version None)
Quarter: 2004Q4

REPORT INFORMATION
  Report Type: 
  Country: None (occurrence: None)
  Receive Date: 20041007
  Receipt Date: 20040930
  Transmission Date: 20050328
  Serious: Yes (Hospitalization)
  Sender: FDA-Public Use
  Company Number: FR-ROCHE-381970

PATIENT
  Age: 61 Year
  Sex: Male

DRUGS (13)
  1. CYMEVAN [Suspect]
     Indication: DRUG USE FOR UNKNOWN INDICATION
     Route: 065
     Dates: start: 20040727, end: 20040819
  2. BACTRIM DS [Suspect]
     Indication: DRUG USE FOR UNKNOWN INDICATION
     Route: 048
     Dates: start: 20040727, end: 20040818
  3. CELLCEPT [Concomitant]
     Indication: DRUG USE FOR UNKNOWN INDICATION
     Route: 065
     Dates: start: 20040727
  4. FRAXIPARINE [Concomitant]
     Indication: DRUG USE FOR UNKNOWN INDICATION
     Route: 065
     Dates: end: 20040810
  5. BISOPROLOL FUMARATE [Concomitant]
     Indication: DRUG USE FOR UNKNOWN INDICATION
     Route: 065
  6. XATRAL [Concomitant]
     Indication: URINARY RETENTION
     Route: 065
     Dates: start: 20040803, end: 20040810
  7. PRIMPERAN INJ [Concomitant]
     Indication: DRUG USE FOR UNKNOWN INDICATION
     Route: 065
     Dates: start: 20040803, end: 20040810
  8. PROGRAF [Concomitant]
     Dosage: DOSE REDUCED FROM 6.5 MG TO 5.5 MG 19 AUGUST 2004
     Dates: start: 20040727
  9. AZANTAC [Concomitant]
     Dosage: DRUG WAS NOT TAKEN FROM 19 AUGUST 2004 UNTIL 31 AUGUST 2004
     Dates: start: 20040727
  10. CORTANCYL [Concomitant]
     Dates: start: 20040727
  11. PROSCAR [Concomitant]
     Dates: start: 20040810, end: 20040819
  12. CIPROFLOXACIN [Concomitant]
     Indication: URINARY TRACT INFECTION
     Dates: start: 20040819
  13. FORTUM [Concomitant]
     Indication: URINARY TRACT INFECTION
     Dates: start: 20040819

REACTIONS (4)
  - BACILLUS INFECTION [None]
  - PLATELET PRODUCTION DECREASED [None]
  - THROMBOCYTOPENIA [None]
  - URINARY RETENTION [None]
